FAERS Safety Report 10066594 (Version 3)
Quarter: 2014Q2

REPORT INFORMATION
  Report Type: Spontaneous
  Country: US (occurrence: US)
  Receive Date: 20140408
  Receipt Date: 20140415
  Transmission Date: 20141212
  Serious: No
  Sender: FDA-Public Use
  Company Number: US-GILEAD-2014-0099073

PATIENT
  Sex: Female

DRUGS (3)
  1. LETAIRIS [Suspect]
     Indication: PRODUCT USED FOR UNKNOWN INDICATION
     Dosage: 5 MG, QD
     Route: 065
     Dates: start: 20130722
  2. TYVASO [Suspect]
  3. ADCIRCA [Concomitant]

REACTIONS (4)
  - Chronic obstructive pulmonary disease [Unknown]
  - Heart rate increased [Unknown]
  - Chest pain [Unknown]
  - Dyspnoea [Unknown]
